FAERS Safety Report 8929154 (Version 1)
Quarter: 2012Q4

REPORT INFORMATION
  Report Type: 
  Country: US (occurrence: US)
  Receive Date: 20121127
  Receipt Date: 20121127
  Transmission Date: 20130627
  Serious: Yes (Hospitalization, Other)
  Sender: FDA-Public Use
  Company Number: PHEH2012US021080

PATIENT
  Age: 44 Year
  Sex: Female
  Weight: 96.6 kg

DRUGS (8)
  1. GILENYA [Suspect]
     Indication: MULTIPLE SCLEROSIS
     Dosage: 0.5 mg, QD
     Route: 048
     Dates: start: 20121024
  2. DICLOFENAC SODIUM [Concomitant]
     Route: 061
  3. HYDROCODONE [Concomitant]
     Dosage: 7.5/500, PRN
     Route: 048
  4. TOPROL XL [Concomitant]
     Dosage: 50 mg, QD
     Route: 048
  5. VIT D [Concomitant]
     Dosage: 1000 IU, QD
     Route: 048
  6. REPLENEX [Concomitant]
  7. VIT D3 [Concomitant]
  8. CELEXA [Concomitant]
     Dosage: 20 mg, QD
     Route: 048

REACTIONS (3)
  - Sinus bradycardia [Recovering/Resolving]
  - Electrocardiogram abnormal [Unknown]
  - Blood pressure decreased [Unknown]
